FAERS Safety Report 14284863 (Version 6)
Quarter: 2021Q4

REPORT INFORMATION
  Report Type: Spontaneous
  Country: JP (occurrence: JP)
  Receive Date: 20171214
  Receipt Date: 20211005
  Transmission Date: 20220304
  Serious: Yes (Death, Life-Threatening, Hospitalization, Other)
  Sender: FDA-Public Use
  Company Number: JP-BRISTOL-MYERS SQUIBB COMPANY-BMS-2017-089479

PATIENT
  Age: 50 Year
  Sex: Male

DRUGS (1)
  1. OPDIVO [Suspect]
     Active Substance: NIVOLUMAB
     Indication: Head and neck cancer
     Dosage: 130 MG, TWICE A MONTH
     Route: 041
     Dates: start: 20170906, end: 20170920

REACTIONS (7)
  - Stevens-Johnson syndrome [Fatal]
  - Pneumonia [Fatal]
  - Disseminated intravascular coagulation [Fatal]
  - Cerebral infarction [Unknown]
  - Erythema multiforme [Not Recovered/Not Resolved]
  - Toxic epidermal necrolysis [Fatal]
  - Sepsis [Unknown]

NARRATIVE: CASE EVENT DATE: 20171003
